FAERS Safety Report 6486932-1 (Version None)
Quarter: 2009Q4

REPORT INFORMATION
  Report Type: 
  Country: None (occurrence: None)
  Receive Date: 20091210
  Receipt Date: 20091201
  Transmission Date: 20100525
  Serious: Yes (Other)
  Sender: FDA-Public Use
  Company Number: US-AMGEN-KDL375054

PATIENT
  Sex: Male

DRUGS (3)
  1. ENBREL [Suspect]
     Indication: RHEUMATOID ARTHRITIS
     Route: 058
     Dates: start: 20090501, end: 20091124
  2. PLAQUENIL [Suspect]
     Dates: end: 20091119
  3. MINOCYCLINE [Concomitant]

REACTIONS (1)
  - PUSTULAR PSORIASIS [None]
